FAERS Safety Report 6017199-6 (Version None)
Quarter: 2008Q4

REPORT INFORMATION
  Report Type: 
  Country: None (occurrence: None)
  Receive Date: 20081223
  Receipt Date: 20081210
  Transmission Date: 20090506
  Serious: Yes (Hospitalization)
  Sender: FDA-Public Use
  Company Number: FR-ROCHE-602656

PATIENT
  Age: 28 Year
  Sex: Male

DRUGS (2)
  1. PEGASYS [Suspect]
     Indication: HEPATITIS C
     Dosage: FORM: INJECTABLE SOLUTION, DOSE: 180 UG WEEKLY
     Route: 058
     Dates: start: 20080222
  2. COPEGUS [Suspect]
     Indication: HEPATITIS C
     Route: 048
     Dates: start: 20080222

REACTIONS (5)
  - AGRANULOCYTOSIS [None]
  - ANAEMIA [None]
  - ANAL ABSCESS [None]
  - INFLUENZA LIKE ILLNESS [None]
  - THROMBOCYTOPENIA [None]
